FAERS Safety Report 19603331 (Version 1)
Quarter: 2021Q3

REPORT INFORMATION
  Report Type: Spontaneous
  Country: US (occurrence: US)
  Receive Date: 20210723
  Receipt Date: 20210723
  Transmission Date: 20211014
  Serious: Yes (Other)
  Sender: FDA-Public Use
  Company Number: US-FRESENIUS KABI-FK202107633

PATIENT
  Age: 5 Year
  Sex: Male

DRUGS (2)
  1. VEMURAFENIB. [Suspect]
     Active Substance: VEMURAFENIB
     Indication: BRAIN NEOPLASM
     Dosage: BRAF V600E INHIBITOR
     Route: 048
  2. VINBLASTINE (MANUFACTURER UNKNOWN) [Suspect]
     Active Substance: VINBLASTINE
     Indication: BRAIN NEOPLASM
     Route: 042

REACTIONS (3)
  - Mood altered [Unknown]
  - Neuralgia [Unknown]
  - Photosensitivity reaction [Unknown]
